FAERS Safety Report 20966502 (Version 1)
Quarter: 2022Q2

REPORT INFORMATION
  Report Type: Spontaneous
  Country: US (occurrence: None)
  Receive Date: 20220615
  Receipt Date: 20220615
  Transmission Date: 20220720
  Serious: No
  Sender: FDA-Public Use
  Company Number: None

PATIENT
  Sex: Female

DRUGS (4)
  1. STELARA [Suspect]
     Active Substance: USTEKINUMAB
     Indication: Colitis ulcerative
     Dosage: OTHER FREQUENCY : EVERY8WEEKS;?
     Route: 058
     Dates: start: 20181227
  2. STELARA [Suspect]
     Active Substance: USTEKINUMAB
     Indication: Upper respiratory tract infection
  3. STELARA [Suspect]
     Active Substance: USTEKINUMAB
     Indication: Proctitis ulcerative
  4. STELARA [Suspect]
     Active Substance: USTEKINUMAB
     Indication: Rectal haemorrhage

REACTIONS (4)
  - Condition aggravated [None]
  - Abdominal discomfort [None]
  - Abdominal discomfort [None]
  - Drug ineffective [None]
